FAERS Safety Report 24274285 (Version 1)
Quarter: 2024Q3

REPORT INFORMATION
  Report Type: Report from Study
  Country: US (occurrence: US)
  Receive Date: 20240902
  Receipt Date: 20240902
  Transmission Date: 20241017
  Serious: Yes (Death)
  Sender: ROCHE
  Company Number: US-ROCHE-10000068586

PATIENT
  Age: 83 Year
  Sex: Male

DRUGS (2)
  1. BEVACIZUMAB [Suspect]
     Active Substance: BEVACIZUMAB
     Indication: Glioblastoma
     Route: 065
  2. PEMBROLIZUMAB [Suspect]
     Active Substance: PEMBROLIZUMAB
     Indication: Glioblastoma
     Route: 065

REACTIONS (3)
  - Metastases to bone [Fatal]
  - Disease progression [Fatal]
  - Drug ineffective [Unknown]
